FAERS Safety Report 5214381-2 (Version None)
Quarter: 2007Q1

REPORT INFORMATION
  Report Type: 
  Country: None (occurrence: None)
  Receive Date: 20070122
  Receipt Date: 20070117
  Transmission Date: 20070707
  Serious: Yes (Hospitalization)
  Sender: FDA-Public Use
  Company Number: FR-GLAXOSMITHKLINE-B0454722A

PATIENT
  Age: 34 Year
  Sex: Female

DRUGS (3)
  1. AUGMENTIN '125' [Suspect]
     Route: 042
     Dates: start: 20061101
  2. CLAVENTIN [Suspect]
     Route: 042
     Dates: start: 20061101
  3. AMIKACIN [Suspect]
     Route: 042
     Dates: start: 20061101

REACTIONS (1)
  - INTRA-UTERINE DEATH [None]
